FAERS Safety Report 24606705 (Version 1)
Quarter: 2024Q4

REPORT INFORMATION
  Report Type: Spontaneous
  Country: GB (occurrence: GB)
  Receive Date: 20241112
  Receipt Date: 20241112
  Transmission Date: 20250114
  Serious: Yes (Other)
  Sender: TEVA
  Company Number: GB-MHRA-TPP45715268C6797069YC1730477362374

PATIENT
  Age: 37 Year
  Sex: Female
  Weight: 67 kg

DRUGS (12)
  1. NAPROXEN [Suspect]
     Active Substance: NAPROXEN
     Indication: Ill-defined disorder
     Route: 065
     Dates: start: 20241009, end: 20241101
  2. FENTANYL [Concomitant]
     Active Substance: FENTANYL
     Indication: Ill-defined disorder
     Dosage: AS DIRECTED. REM...
     Dates: start: 20230623, end: 20240822
  3. DIAZEPAM [Concomitant]
     Active Substance: DIAZEPAM
     Indication: Ill-defined disorder
     Dosage: TAKE ONE TWICE DAILY AND TWO AT NIGHT, TPP YC - PLEASE RECLASSIFY
     Dates: start: 20230623
  4. CODEINE PHOSPHATE [Concomitant]
     Active Substance: CODEINE PHOSPHATE
     Indication: Ill-defined disorder
     Dates: start: 20230623, end: 20241009
  5. BISACODYL [Concomitant]
     Active Substance: BISACODYL
     Indication: Ill-defined disorder
     Dosage: ONE OR TWO TO BE TAKEN AT NIGHT IF BOWELS NOT O...
     Dates: start: 20230623
  6. GABAPENTIN [Concomitant]
     Active Substance: GABAPENTIN
     Indication: Ill-defined disorder
     Dates: start: 20230623
  7. OLANZAPINE [Concomitant]
     Active Substance: OLANZAPINE
     Indication: Ill-defined disorder
     Dates: start: 20240614
  8. DILTIAZEM [Concomitant]
     Active Substance: DILTIAZEM
     Indication: Ill-defined disorder
     Dates: start: 20230623
  9. FENTANYL [Concomitant]
     Active Substance: FENTANYL
     Indication: Ill-defined disorder
     Dates: start: 20230719, end: 20240822
  10. BUPRENORPHINE [Concomitant]
     Active Substance: BUPRENORPHINE
     Indication: Ill-defined disorder
     Dates: start: 20241024
  11. SENNA [Concomitant]
     Active Substance: SENNA LEAF\SENNOSIDES\SENNOSIDES A AND B
     Indication: Ill-defined disorder
     Dosage: TIME INTERVAL: AS NECESSARY: TWO TO BE TAKEN AT NIGHT AS REQUIRED FOR CONSTI...
     Dates: start: 20230623
  12. OMEPRAZOLE [Concomitant]
     Active Substance: OMEPRAZOLE
     Indication: Ill-defined disorder
     Dosage: TPP YC - PLEASE RECLASSIFY
     Dates: start: 20230623

REACTIONS (3)
  - Petechiae [Unknown]
  - Chest pain [Unknown]
  - Hyperhidrosis [Unknown]

NARRATIVE: CASE EVENT DATE: 20241101
